FAERS Safety Report 17151333 (Version 3)
Quarter: 2019Q4

REPORT INFORMATION
  Report Type: Spontaneous
  Country: US (occurrence: US)
  Receive Date: 20191213
  Receipt Date: 20191226
  Transmission Date: 20200122
  Serious: No
  Sender: FDA-Public Use
  Company Number: US-PFIZER INC-2019535855

PATIENT
  Age: 55 Year
  Sex: Female

DRUGS (1)
  1. DESVENLAFAXINE SUCCINATE MONOHYDRATE [Suspect]
     Active Substance: DESVENLAFAXINE SUCCINATE
     Indication: DEPRESSION
     Dosage: 50 MG, 3X/DAY
     Route: 048

REACTIONS (6)
  - Urticaria [Recovered/Resolved]
  - Loss of personal independence in daily activities [Unknown]
  - Malaise [Unknown]
  - Drug withdrawal syndrome [Unknown]
  - Drug hypersensitivity [Unknown]
  - Pruritus [Recovered/Resolved]
